FAERS Safety Report 9245081 (Version 1)
Quarter: 2013Q1

REPORT INFORMATION
  Report Type: Spontaneous
  Country: US (occurrence: None)
  Receive Date: 20121130
  Receipt Date: 20121130
  Transmission Date: 20140127
  Serious: Yes (Other)
  Sender: FDA-Public Use
  Company Number: PHEH2012US011343

PATIENT
  Sex: 0

DRUGS (2)
  1. VOLTAREN [Suspect]
  2. PROTONIX ^PHARMACIA^ [Suspect]

REACTIONS (6)
  - Asthma [None]
  - Periostitis [None]
  - Arthralgia [None]
  - Paraesthesia oral [None]
  - Abdominal discomfort [None]
  - Rash [None]
